FAERS Safety Report 7970774-1 (Version None)
Quarter: 2011Q4

REPORT INFORMATION
  Report Type: 
  Country: None (occurrence: None)
  Receive Date: 20111212
  Receipt Date: 20111201
  Transmission Date: 20120403
  Serious: Yes (Hospitalization, Other)
  Sender: FDA-Public Use
  Company Number: DE-JNJFOC-20111200174

PATIENT
  Sex: Female

DRUGS (19)
  1. RISPERDAL [Concomitant]
     Dates: start: 20110606
  2. RISPERDAL [Concomitant]
     Dates: start: 20110622
  3. RISPERDAL [Concomitant]
     Dates: start: 20110609
  4. SOLIAN [Concomitant]
     Indication: PROPHYLAXIS
     Dates: start: 20110518
  5. SOLIAN [Concomitant]
     Dates: start: 20110516
  6. SEROQUEL [Concomitant]
     Dates: start: 20110619
  7. RISPERDAL [Concomitant]
     Dates: start: 20110621
  8. SEROQUEL [Concomitant]
     Dates: start: 20110604
  9. SEROQUEL [Concomitant]
     Dates: start: 20110603
  10. RISPERDAL [Concomitant]
     Dates: start: 20110518
  11. RISPERDAL [Concomitant]
     Dates: start: 20110607
  12. RISPERDAL [Concomitant]
     Dates: start: 20110617
  13. SEROQUEL [Concomitant]
     Dates: start: 20110620
  14. SEROQUEL [Concomitant]
     Dates: start: 20110531
  15. PALIPERIDONE [Suspect]
     Indication: SCHIZOPHRENIA
     Dates: start: 20110614
  16. SOLIAN [Concomitant]
     Dates: start: 20110512
  17. RISPERDAL [Concomitant]
     Indication: PROPHYLAXIS
     Dates: start: 20110608
  18. RISPERDAL [Concomitant]
     Dates: start: 20110516
  19. SEROQUEL [Concomitant]
     Dates: start: 20110601

REACTIONS (1)
  - SCHIZOPHRENIA [None]
